FAERS Safety Report 8092342-6 (Version None)
Quarter: 2012Q1

REPORT INFORMATION
  Report Type: 
  Country: None (occurrence: None)
  Receive Date: 20120128
  Receipt Date: 20110824
  Transmission Date: 20120608
  Serious: No
  Sender: FDA-Public Use
  Company Number: US-ABBOTT-11P-163-0849019-00

PATIENT
  Sex: Female

DRUGS (26)
  1. RESTASIS [Concomitant]
     Indication: PRODUCT USED FOR UNKNOWN INDICATION
     Dosage: EYE DROPS, TWICE DAILY
  2. VITAMIN D [Concomitant]
     Indication: PRODUCT USED FOR UNKNOWN INDICATION
  3. GLUCOSAMINE CHONDROITIN [Concomitant]
     Indication: PRODUCT USED FOR UNKNOWN INDICATION
  4. PREVACID [Concomitant]
     Indication: PRODUCT USED FOR UNKNOWN INDICATION
     Route: 048
  5. ZOLOFT [Concomitant]
     Indication: PRODUCT USED FOR UNKNOWN INDICATION
     Route: 048
  6. CALCIUM WITH VITAMIN D [Concomitant]
     Indication: PRODUCT USED FOR UNKNOWN INDICATION
  7. ASPIRIN [Concomitant]
     Indication: PRODUCT USED FOR UNKNOWN INDICATION
  8. ALFALFA [Concomitant]
     Indication: GOUT
  9. TYLENOL W/ CODEINE NO. 3 [Concomitant]
     Indication: ARTHRALGIA
     Dosage: ONCE OR TWICE DAILY, AS NEEDED
     Route: 048
  10. ALOE VERA [Concomitant]
     Indication: PRODUCT USED FOR UNKNOWN INDICATION
     Dosage: GEL
  11. PATADAY [Concomitant]
     Indication: HYPERSENSITIVITY
     Dosage: EYE DROPS, AS NEEDED
  12. VITAMIN B COMPLEX CAP [Concomitant]
     Indication: PRODUCT USED FOR UNKNOWN INDICATION
  13. ASCORBIC ACID [Concomitant]
     Indication: PRODUCT USED FOR UNKNOWN INDICATION
  14. SIMVASTATIN [Concomitant]
     Indication: BLOOD CHOLESTEROL
     Route: 048
  15. LASIX [Concomitant]
     Indication: OEDEMA PERIPHERAL
     Route: 048
     Dates: start: 20110401
  16. UNKNOWN CREAMS [Concomitant]
     Indication: PSORIASIS
  17. HUMIRA [Suspect]
     Indication: PSORIASIS
     Dosage: LOADING DOSE
     Dates: start: 20110819
  18. SYNTHROID [Concomitant]
     Indication: HYPOTHYROIDISM
     Dosage: 0.125MG (1 TAB) FOR 5 DAYS, 1.5 TABS 2 D
  19. ALLEGRA [Concomitant]
     Indication: HYPERSENSITIVITY
     Route: 048
  20. ACTOS [Concomitant]
     Indication: PRODUCT USED FOR UNKNOWN INDICATION
     Route: 048
  21. DIOVAN [Concomitant]
     Indication: PRODUCT USED FOR UNKNOWN INDICATION
     Route: 048
     Dates: start: 20110501
  22. ACIDOPHILUS [Concomitant]
     Indication: PRODUCT USED FOR UNKNOWN INDICATION
  23. DICYCLOMINE [Concomitant]
     Indication: GASTROOESOPHAGEAL REFLUX DISEASE
     Route: 048
  24. TEKTURNA [Concomitant]
     Indication: BLOOD PRESSURE
     Dates: start: 20110401
  25. COQ10 [Concomitant]
     Indication: PRODUCT USED FOR UNKNOWN INDICATION
  26. ALFALFA [Concomitant]
     Indication: ARTHRITIS

REACTIONS (1)
  - FEELING COLD [None]
